FAERS Safety Report 7669628-X (Version None)
Quarter: 2011Q3

REPORT INFORMATION
  Report Type: 
  Country: None (occurrence: None)
  Receive Date: 20110808
  Receipt Date: 20110726
  Transmission Date: 20111222
  Serious: Yes (Other)
  Sender: FDA-Public Use
  Company Number: PHHY2011JP43125

PATIENT
  Sex: Female
  Weight: 46 kg

DRUGS (15)
  1. CONIEL [Concomitant]
     Dosage: 8 MG, IN 2 DIVIDED DOSES.
     Route: 048
  2. DOXAZOSIN MESYLATE [Concomitant]
     Dosage: 4 MG, DAILY IN 2 DIVIDED DOSE
     Route: 048
  3. TICLOPIDINE HCL [Concomitant]
     Dosage: 100 MG, UNK
     Route: 048
  4. ADENOSINE [Suspect]
     Dosage: 40 MG, UNK
     Route: 048
     Dates: start: 20110428
  5. PLAVIX [Suspect]
     Dosage: 75 MG, QD
     Route: 048
     Dates: start: 20110428
  6. HALCION [Suspect]
     Dosage: 0.25 MG, UNK
     Route: 048
     Dates: start: 20110428
  7. CRESTOR [Suspect]
     Dosage: 2.5 MG, QD
     Route: 048
     Dates: start: 20110428
  8. AVAPRO [Concomitant]
     Dosage: 50 MG, QD
     Route: 048
  9. LOPRESSOR [Concomitant]
     Indication: HYPERTENSION
     Dosage: 120 MG, QD
  10. EXFORGE [Suspect]
     Indication: HYPERTENSION
     Dosage: 1 DF, DAILY
     Route: 048
     Dates: start: 20110428
  11. IRBESARTAN [Suspect]
     Dosage: 100 MG, QD
     Route: 048
     Dates: start: 20110428
  12. CARTEOLOL HYDROCHLORIDE [Concomitant]
     Dosage: 15 MG, QD
     Route: 048
  13. BEZATOL [Concomitant]
     Dosage: 400 MG DAILY IN 2 DIVIDED DOSE
     Route: 048
  14. CEPHADOL [Concomitant]
     Dosage: 75 MG DAILY IN 3 DIVIDED DOSE
     Route: 048
     Dates: end: 20110428
  15. AMOBAN [Concomitant]
     Dosage: 7.5 MG, QD
     Route: 048
     Dates: end: 20110428

REACTIONS (9)
  - DIZZINESS [None]
  - TREMOR [None]
  - DRUG INEFFECTIVE [None]
  - BLOOD PRESSURE SYSTOLIC INCREASED [None]
  - HEADACHE [None]
  - MUSCULOSKELETAL STIFFNESS [None]
  - HYPERTENSIVE ENCEPHALOPATHY [None]
  - NOCTURIA [None]
  - DISCOMFORT [None]
